FAERS Safety Report 5939208-2 (Version None)
Quarter: 2008Q4

REPORT INFORMATION
  Report Type: 
  Country: None (occurrence: None)
  Receive Date: 20081103
  Receipt Date: 20081023
  Transmission Date: 20090506
  Serious: Yes (Death)
  Sender: FDA-Public Use
  Company Number: JP-BAXTER-2008BH011411

PATIENT
  Age: 37 Year
  Sex: Male

DRUGS (6)
  1. ENDOXAN BAXTER [Suspect]
     Indication: LEUKAEMIA
     Dosage: DOSE UNIT:UNKNOWN
     Route: 041
     Dates: start: 19910101, end: 19910101
  2. ENDOXAN BAXTER [Suspect]
     Indication: PROPHYLAXIS
     Dosage: DOSE UNIT:UNKNOWN
     Route: 041
     Dates: start: 19910101, end: 19910101
  3. ETOPOSIDE [Suspect]
     Indication: LEUKAEMIA
     Dosage: DOSE UNIT:UNKNOWN
     Route: 041
     Dates: start: 19910101, end: 19910101
  4. ETOPOSIDE [Suspect]
     Indication: PROPHYLAXIS
     Dosage: DOSE UNIT:UNKNOWN
     Route: 041
     Dates: start: 19910101, end: 19910101
  5. RADIATION THERAPY [Suspect]
     Indication: LEUKAEMIA
     Dosage: DOSE UNIT:UNKNOWN
     Route: 065
     Dates: start: 19910101, end: 19910101
  6. RADIATION THERAPY [Suspect]
     Indication: PROPHYLAXIS
     Dosage: DOSE UNIT:UNKNOWN
     Route: 065
     Dates: start: 19910101, end: 19910101

REACTIONS (1)
  - DRUG TOXICITY [None]
